FAERS Safety Report 23465758 (Version 2)
Quarter: 2024Q1

REPORT INFORMATION
  Report Type: Spontaneous
  Country: US (occurrence: US)
  Receive Date: 20240201
  Receipt Date: 20240216
  Transmission Date: 20240410
  Serious: Yes (Hospitalization, Other)
  Sender: FDA-Public Use
  Company Number: US-TEVA-VS-3135101

PATIENT
  Age: 73 Year
  Sex: Male

DRUGS (9)
  1. WARFARIN [Suspect]
     Active Substance: WARFARIN
     Indication: Atrial fibrillation
     Route: 048
  2. WARFARIN [Suspect]
     Active Substance: WARFARIN
     Indication: Atrial fibrillation
     Dosage: RECHALLENGED
     Route: 048
  3. ENOXAPARIN [Suspect]
     Active Substance: ENOXAPARIN
  4. RITONAVIR [Suspect]
     Active Substance: RITONAVIR
     Indication: HIV infection
     Route: 048
  5. EMTRICITABINE\TENOFOVIR DISOPROXIL FUMARATE [Concomitant]
     Active Substance: EMTRICITABINE\TENOFOVIR DISOPROXIL FUMARATE
     Indication: HIV infection
     Dosage: 200-300 MG
     Route: 048
  6. APIXABAN [Suspect]
     Active Substance: APIXABAN
     Indication: Anticoagulant therapy
     Dosage: RECEIVED REDUCED RECOMMENDED DOSE
     Route: 065
  7. LAMOTRIGINE [Concomitant]
     Active Substance: LAMOTRIGINE
     Indication: Seizure
     Route: 048
  8. LEVETIRACETAM [Concomitant]
     Active Substance: LEVETIRACETAM
     Indication: Seizure
     Route: 048
  9. DARUNAVIR [Suspect]
     Active Substance: DARUNAVIR
     Indication: HIV infection
     Route: 048

REACTIONS (5)
  - Haemorrhage [Recovered/Resolved]
  - Mental status changes [Unknown]
  - Drug interaction [Unknown]
  - Incorrect dose administered [Unknown]
  - Respiratory distress [Unknown]
